FAERS Safety Report 11859879 (Version 1)
Quarter: 2015Q4

REPORT INFORMATION
  Report Type: Spontaneous
  Country: US (occurrence: US)
  Receive Date: 20151222
  Receipt Date: 20151222
  Transmission Date: 20160305
  Serious: Yes (Other)
  Sender: FDA-Public Use
  Company Number: US-PFIZER INC-2015460402

PATIENT
  Age: 11 Year
  Sex: Male

DRUGS (3)
  1. RITALIN [Suspect]
     Active Substance: METHYLPHENIDATE HYDROCHLORIDE
     Dosage: UNK
  2. VENLAFAXINE HCL [Suspect]
     Active Substance: VENLAFAXINE HYDROCHLORIDE
     Dosage: UNK
  3. XYREM [Concomitant]
     Active Substance: SODIUM OXYBATE
     Dosage: UNK

REACTIONS (3)
  - Product use issue [Unknown]
  - Suicidal ideation [Unknown]
  - Hallucination [Unknown]
